FAERS Safety Report 17397463 (Version 1)
Quarter: 2020Q1

REPORT INFORMATION
  Report Type: Spontaneous
  Country: RU (occurrence: RU)
  Receive Date: 20200210
  Receipt Date: 20200210
  Transmission Date: 20200409
  Serious: Yes (Hospitalization, Other)
  Sender: FDA-Public Use
  Company Number: RU-JNJFOC-20200209785

PATIENT
  Sex: Male

DRUGS (8)
  1. METOPROLOL. [Concomitant]
     Active Substance: METOPROLOL
     Dosage: UNK
  2. FUROSEMIDE. [Concomitant]
     Active Substance: FUROSEMIDE
     Dosage: UNK
  3. LISINOPRIL. [Concomitant]
     Active Substance: LISINOPRIL
     Dosage: UNK
  4. VEROSPIRON [Concomitant]
     Active Substance: SPIRONOLACTONE
     Dosage: UNK
  5. METFORMIN [Concomitant]
     Active Substance: METFORMIN HYDROCHLORIDE
     Dosage: UNK
  6. DIGOXIN. [Concomitant]
     Active Substance: DIGOXIN
     Dosage: UNK
  7. RIVAROXABAN [Suspect]
     Active Substance: RIVAROXABAN
     Indication: PULMONARY EMBOLISM
     Dosage: 20 MG, OM
     Route: 048
  8. RIVAROXABAN [Suspect]
     Active Substance: RIVAROXABAN
     Indication: ATRIAL FIBRILLATION

REACTIONS (5)
  - Haemoglobin decreased [Recovering/Resolving]
  - Syncope [Unknown]
  - Adverse drug reaction [Unknown]
  - Anaemia [Unknown]
  - Blood iron decreased [Unknown]

NARRATIVE: CASE EVENT DATE: 202001
